FAERS Safety Report 4957383-3 (Version None)
Quarter: 2006Q1

REPORT INFORMATION
  Report Type: 
  Country: None (occurrence: None)
  Receive Date: 20060327
  Receipt Date: 20060315
  Transmission Date: 20060701
  Serious: Yes (Hospitalization)
  Sender: FDA-Public Use
  Company Number: HQWYE355716MAR06

PATIENT
  Age: 37 Year
  Sex: Male
  Weight: 102.8 kg

DRUGS (3)
  1. MYLOTARG [Suspect]
     Indication: ACUTE MYELOID LEUKAEMIA
     Dosage: 13.8 MG 1X PER 1 DAY, INTRAVENOUS
     Route: 042
     Dates: start: 20050317, end: 20050317
  2. CYTARABINE [Suspect]
     Indication: ACUTE MYELOID LEUKAEMIA
     Dosage: TOTAL DOSE 1610 MG, INTRAVENOUS
     Route: 042
     Dates: start: 20050314, end: 20050320
  3. DAUNOMYCIN (DAUNORUBICIN) [Suspect]
     Indication: ACUTE MYELOID LEUKAEMIA
     Dosage: TOTAL DOSE 310.5 MG, INTRAVENOUS
     Route: 042
     Dates: start: 20050314, end: 20050316

REACTIONS (9)
  - CATHETER SEPSIS [None]
  - CEREBRAL HAEMORRHAGE [None]
  - CONDITION AGGRAVATED [None]
  - HALLUCINATION [None]
  - LEUKOPENIA [None]
  - NEUTROPENIA [None]
  - PHOTOPHOBIA [None]
  - STAPHYLOCOCCAL SEPSIS [None]
  - THROMBOCYTOPENIA [None]
